FAERS Safety Report 7749319-7 (Version None)
Quarter: 2011Q3

REPORT INFORMATION
  Report Type: 
  Country: None (occurrence: None)
  Receive Date: 20110914
  Receipt Date: 20100809
  Transmission Date: 20111222
  Serious: No
  Sender: FDA-Public Use
  Company Number: US-BAYER-201032959NA

PATIENT
  Age: 29 Year
  Sex: Female

DRUGS (2)
  1. MIRENA [Suspect]
     Indication: CONTRACEPTION
     Dosage: UNK
     Route: 015
     Dates: start: 20070101, end: 20100709
  2. ANTIBIOTICS [Concomitant]

REACTIONS (4)
  - GENITAL HAEMORRHAGE [None]
  - NIPPLE PAIN [None]
  - BACTERIAL INFECTION [None]
  - BREAST SWELLING [None]
